FAERS Safety Report 6210943-4 (Version None)
Quarter: 2009Q2

REPORT INFORMATION
  Report Type: 
  Country: None (occurrence: None)
  Receive Date: 20090601
  Receipt Date: 20090526
  Transmission Date: 20091009
  Serious: Yes (Other)
  Sender: FDA-Public Use
  Company Number: US-ABBOTT-09P-163-0575981-00

PATIENT
  Sex: Female
  Weight: 90.8 kg

DRUGS (4)
  1. HUMIRA [Suspect]
     Indication: RHEUMATOID ARTHRITIS
     Route: 058
     Dates: start: 20090129, end: 20090511
  2. PREDNISONE [Concomitant]
     Indication: RHEUMATOID ARTHRITIS
  3. CELEBREX [Concomitant]
     Indication: RHEUMATOID ARTHRITIS
  4. NORCO [Concomitant]
     Indication: RHEUMATOID ARTHRITIS
     Dosage: UNKNOWN

REACTIONS (4)
  - INJECTION SITE PAIN [None]
  - LOCALISED INFECTION [None]
  - RHEUMATOID ARTHRITIS [None]
  - TOE AMPUTATION [None]
